FAERS Safety Report 9933819 (Version 1)
Quarter: 2014Q1

REPORT INFORMATION
  Report Type: Report from Study
  Country: US (occurrence: US)
  Receive Date: 20140228
  Receipt Date: 20140228
  Transmission Date: 20141002
  Serious: No
  Sender: FDA-Public Use
  Company Number: US-MYLANLABS-2013S1015809

PATIENT
  Age: 68 Year
  Sex: Male
  Weight: 144 kg

DRUGS (13)
  1. AMNESTEEM CAPSULES [Suspect]
     Indication: FOLLICULITIS
     Dates: start: 201208, end: 201305
  2. AMNESTEEM CAPSULES [Suspect]
     Indication: HIDRADENITIS
     Dates: start: 201208, end: 201305
  3. AMNESTEEM CAPSULES [Suspect]
     Indication: OFF LABEL USE
     Dates: start: 201208, end: 201305
  4. AMNESTEEM CAPSULES [Suspect]
     Indication: FOLLICULITIS
     Dates: start: 201208, end: 201305
  5. AMNESTEEM CAPSULES [Suspect]
     Indication: HIDRADENITIS
     Dates: start: 201208, end: 201305
  6. AMNESTEEM CAPSULES [Suspect]
     Indication: OFF LABEL USE
     Dates: start: 201208, end: 201305
  7. ASA [Concomitant]
  8. ATORVASTATIN [Concomitant]
  9. QUINAPRIL [Concomitant]
  10. FOLIC ACID [Concomitant]
  11. GLIPIZIDE [Concomitant]
  12. QUETIAPINE [Concomitant]
  13. SERTRALINE [Concomitant]

REACTIONS (1)
  - Drug ineffective for unapproved indication [Not Recovered/Not Resolved]
